FAERS Safety Report 12500835 (Version 5)
Quarter: 2024Q4

REPORT INFORMATION
  Report Type: Spontaneous
  Country: TW (occurrence: TW)
  Receive Date: 20160627
  Receipt Date: 20241118
  Transmission Date: 20250114
  Serious: Yes (Life-Threatening, Hospitalization, Other)
  Sender: PFIZER
  Company Number: TW-MLMSERVICE-20160616-0321975-1

PATIENT
  Age: 50 Year
  Sex: Female

DRUGS (9)
  1. CISPLATIN [Suspect]
     Active Substance: CISPLATIN
     Indication: Nasopharyngeal cancer recurrent
     Dosage: 80 MG/M2, SINGLE 6-HR INFUSION, ON DAY 1
  2. CISPLATIN [Suspect]
     Active Substance: CISPLATIN
     Indication: Metastases to lung
  3. CISPLATIN [Suspect]
     Active Substance: CISPLATIN
     Indication: Nonkeratinising carcinoma of nasopharynx
  4. DOCETAXEL [Suspect]
     Active Substance: DOCETAXEL
     Indication: Nasopharyngeal cancer recurrent
     Dosage: 60 MG/M2, SINGLE 1-HR INFUSION, ON DAY 1
  5. DOCETAXEL [Suspect]
     Active Substance: DOCETAXEL
     Indication: Metastases to lung
  6. DOCETAXEL [Suspect]
     Active Substance: DOCETAXEL
     Indication: Nonkeratinising carcinoma of nasopharynx
  7. FLUOROURACIL [Suspect]
     Active Substance: FLUOROURACIL
     Indication: Nasopharyngeal cancer recurrent
     Dosage: 800 MG/M2, CONTINUOUS PUMP,FROM DAY 1 TO DAY 4
  8. FLUOROURACIL [Suspect]
     Active Substance: FLUOROURACIL
     Indication: Metastases to lung
  9. FLUOROURACIL [Suspect]
     Active Substance: FLUOROURACIL
     Indication: Nonkeratinising carcinoma of nasopharynx

REACTIONS (2)
  - Hyponatraemia [Recovering/Resolving]
  - Osmotic demyelination syndrome [Recovering/Resolving]
